FAERS Safety Report 5181081-7 (Version None)
Quarter: 2006Q4

REPORT INFORMATION
  Report Type: 
  Country: None (occurrence: None)
  Receive Date: 20061220
  Receipt Date: 20060925
  Transmission Date: 20070319
  Serious: Yes (Hospitalization)
  Sender: FDA-Public Use
  Company Number: PHBS2006JP14892

PATIENT
  Age: 88 Year
  Sex: Female
  Weight: 40 kg

DRUGS (4)
  1. DIOVAN [Suspect]
     Indication: HYPERTENSION
     Dosage: 160 MG/DAY
     Route: 048
     Dates: start: 20060627, end: 20060913
  2. PANALDINE [Suspect]
     Indication: ANGINA PECTORIS
     Dosage: 200 MG/DAY
     Route: 048
     Dates: start: 20060608, end: 20060906
  3. LIPITOR [Suspect]
     Indication: HYPERLIPIDAEMIA
     Dosage: 10 MG/DAY
     Route: 048
     Dates: start: 20060719, end: 20060823
  4. PLETAL [Suspect]
     Indication: ANGINA PECTORIS
     Dosage: 200 MG/DAY
     Route: 048
     Dates: start: 20060906, end: 20060913

REACTIONS (17)
  - BLOOD ALKALINE PHOSPHATASE INCREASED [None]
  - BLOOD CREATININE INCREASED [None]
  - BLOOD LACTATE DEHYDROGENASE INCREASED [None]
  - BLOOD POTASSIUM DECREASED [None]
  - BLOOD UREA DECREASED [None]
  - C-REACTIVE PROTEIN INCREASED [None]
  - DERMATITIS EXFOLIATIVE [None]
  - EOSINOPHIL COUNT INCREASED [None]
  - HAEMATOCRIT DECREASED [None]
  - HAEMOGLOBIN DECREASED [None]
  - HYPERTENSION [None]
  - OEDEMA [None]
  - PROTEIN TOTAL INCREASED [None]
  - PRURITUS [None]
  - RASH GENERALISED [None]
  - URTICARIA [None]
  - WHITE BLOOD CELL COUNT INCREASED [None]
